FAERS Safety Report 7806705-4 (Version None)
Quarter: 2011Q4

REPORT INFORMATION
  Report Type: 
  Country: None (occurrence: None)
  Receive Date: 20111011
  Receipt Date: 20110930
  Transmission Date: 20120403
  Serious: Yes (Hospitalization)
  Sender: FDA-Public Use
  Company Number: CA-JNJFOC-20111001724

PATIENT
  Sex: Male
  Weight: 64 kg

DRUGS (2)
  1. REMICADE [Suspect]
     Indication: CROHN'S DISEASE
     Route: 042
     Dates: start: 20101212
  2. HYDROCORTISONE [Concomitant]
     Indication: PREMEDICATION
     Dosage: PRIOR TO INFUSION
     Route: 065

REACTIONS (2)
  - SURGERY [None]
  - INCISION SITE INFECTION [None]
